FAERS Safety Report 17868227 (Version 3)
Quarter: 2020Q3

REPORT INFORMATION
  Report Type: Report from Study
  Country: US (occurrence: US)
  Receive Date: 20200605
  Receipt Date: 20200701
  Transmission Date: 20201103
  Serious: Yes (Death)
  Sender: FDA-Public Use
  Company Number: US-ROCHE-2594788

PATIENT
  Age: 63 Year
  Sex: Female
  Weight: 106 kg

DRUGS (40)
  1. METHYLPREDNISOLONE. [Concomitant]
     Active Substance: METHYLPREDNISOLONE
     Indication: HYPERSENSITIVITY
     Route: 065
     Dates: start: 20200501, end: 20200501
  2. MIDAZOLAM. [Concomitant]
     Active Substance: MIDAZOLAM
     Dosage: OTHER
     Route: 065
     Dates: start: 20200430, end: 20200430
  3. POTASSIUM CHLORIDE. [Concomitant]
     Active Substance: POTASSIUM CHLORIDE
     Dosage: 20 OTHER
     Route: 065
     Dates: start: 20200428, end: 20200428
  4. ROCURONIUM [Concomitant]
     Active Substance: ROCURONIUM BROMIDE
     Dosage: OTHER
     Route: 065
     Dates: start: 20200501, end: 20200501
  5. ONDANSETRON [Concomitant]
     Active Substance: ONDANSETRON
     Indication: NAUSEA
     Route: 065
     Dates: start: 20200423, end: 20200423
  6. LEVOPHED [Concomitant]
     Active Substance: NOREPINEPHRINE BITARTRATE
     Indication: COVID-19 PNEUMONIA
     Dosage: OTHER
     Route: 065
     Dates: start: 20200501, end: 20200502
  7. TOCILIZUMAB. [Suspect]
     Active Substance: TOCILIZUMAB
     Indication: COVID-19 PNEUMONIA
     Dosage: DATE OF MOST RECENT DOSE (100 ML) OF BLINDED TOCILIZUMAB PRIOR TO ONSET OF SAE: 30/APR/2020 (13:23)
     Route: 042
     Dates: start: 20200430
  8. DIPHENHYDRAMINE. [Concomitant]
     Active Substance: DIPHENHYDRAMINE
     Indication: HYPERSENSITIVITY
     Dosage: DOSE FREQUENCY: OTHER
     Route: 065
     Dates: start: 20200501, end: 20200501
  9. ENOXAPARIN [Concomitant]
     Active Substance: ENOXAPARIN
     Route: 065
     Dates: start: 20200427, end: 20200428
  10. MIDAZOLAM. [Concomitant]
     Active Substance: MIDAZOLAM
     Indication: MECHANICAL VENTILATION
     Route: 065
     Dates: start: 20200427, end: 20200427
  11. LORAZEPAM. [Concomitant]
     Active Substance: LORAZEPAM
     Indication: ANXIETY
     Route: 065
     Dates: start: 20200423, end: 20200424
  12. LORAZEPAM. [Concomitant]
     Active Substance: LORAZEPAM
     Route: 065
     Dates: start: 20200426, end: 20200501
  13. MIDAZOLAM. [Concomitant]
     Active Substance: MIDAZOLAM
     Route: 065
     Dates: start: 20200427, end: 20200427
  14. POTASSIUM CHLORIDE. [Concomitant]
     Active Substance: POTASSIUM CHLORIDE
     Indication: ELECTROLYTE IMBALANCE
     Dosage: 10 OTHER
     Route: 065
     Dates: start: 20200429, end: 20200429
  15. ACETAMINOPHEN. [Concomitant]
     Active Substance: ACETAMINOPHEN
     Route: 065
     Dates: start: 20200427, end: 20200427
  16. ENOXAPARIN [Concomitant]
     Active Substance: ENOXAPARIN
     Indication: THROMBOSIS PROPHYLAXIS
     Route: 065
     Dates: start: 20200423, end: 20200427
  17. FENTANYL. [Concomitant]
     Active Substance: FENTANYL
     Indication: PAIN
     Route: 065
     Dates: start: 20200427, end: 20200429
  18. MORPHINE [Concomitant]
     Active Substance: MORPHINE
     Indication: DYSPNOEA
     Route: 065
     Dates: start: 20200423, end: 20200423
  19. PROPOFOL. [Concomitant]
     Active Substance: PROPOFOL
     Indication: MECHANICAL VENTILATION
     Route: 065
     Dates: start: 20200427, end: 20200502
  20. HEPARIN [Concomitant]
     Active Substance: HEPARIN SODIUM
     Indication: THROMBOSIS PROPHYLAXIS
     Dosage: 7500 UNIT
     Route: 065
     Dates: start: 20200428, end: 20200501
  21. PANTOPRAZOLE [Concomitant]
     Active Substance: PANTOPRAZOLE
     Indication: GASTROOESOPHAGEAL REFLUX DISEASE
     Route: 065
     Dates: start: 20200427, end: 20200501
  22. VANCOMYCIN [Concomitant]
     Active Substance: VANCOMYCIN
     Indication: PNEUMONIA
     Route: 065
     Dates: start: 20200426, end: 20200427
  23. PERIDEX [CHLORHEXIDINE GLUCONATE] [Concomitant]
     Indication: PROPHYLAXIS
     Route: 065
     Dates: start: 20200427, end: 20200501
  24. FAMOTIDINE. [Concomitant]
     Active Substance: FAMOTIDINE
     Indication: HYPERSENSITIVITY
     Dosage: DOSE FREQUENCY: OTHER
     Route: 065
     Dates: start: 20200501, end: 20200501
  25. KETAMINE [Concomitant]
     Active Substance: KETAMINE
     Indication: MECHANICAL VENTILATION
     Dosage: DOSE FREQUENCY: OTHER
     Route: 065
     Dates: start: 20200427, end: 20200427
  26. PIPERACILLIN AND TAZOBACTAM [Concomitant]
     Active Substance: PIPERACILLIN SODIUM\TAZOBACTAM SODIUM
     Indication: PNEUMONIA
     Route: 065
     Dates: start: 20200427, end: 20200501
  27. MILK OF MAGNESIA [Concomitant]
     Active Substance: MAGNESIUM HYDROXIDE
     Indication: CONSTIPATION
     Route: 065
     Dates: start: 20200428, end: 20200428
  28. MORPHINE [Concomitant]
     Active Substance: MORPHINE
     Route: 065
     Dates: start: 20200426, end: 20200426
  29. DOCUSATE;SENNA [Concomitant]
     Indication: CONSTIPATION
     Dosage: DOSE 1 TABLET
     Route: 065
     Dates: start: 20200427, end: 20200501
  30. ROCURONIUM [Concomitant]
     Active Substance: ROCURONIUM BROMIDE
     Indication: MECHANICAL VENTILATION
     Route: 065
     Dates: start: 20200427, end: 20200427
  31. SODIUM CHLORIDE. [Concomitant]
     Active Substance: SODIUM CHLORIDE
     Route: 065
     Dates: start: 20200426, end: 20200501
  32. ACETAMINOPHEN. [Concomitant]
     Active Substance: ACETAMINOPHEN
     Indication: PYREXIA
     Route: 065
     Dates: start: 20200426, end: 20200426
  33. BISACODYL. [Concomitant]
     Active Substance: BISACODYL
     Indication: CONSTIPATION
     Route: 065
     Dates: start: 20200427, end: 20200430
  34. GUAIFENESIN/CODEINE [Concomitant]
     Active Substance: CODEINE PHOSPHATE\GUAIFENESIN
     Indication: COUGH
     Route: 065
     Dates: start: 20200423, end: 20200425
  35. EPOPROSTENOL. [Concomitant]
     Active Substance: EPOPROSTENOL
     Indication: HYPOXIA
     Dosage: 0.5 OTHER
     Route: 065
     Dates: start: 20200427, end: 20200502
  36. CEFTRIAXONE. [Concomitant]
     Active Substance: CEFTRIAXONE
     Indication: PNEUMONIA
     Route: 065
     Dates: start: 20200426, end: 20200426
  37. LEVOTHYROXINE. [Concomitant]
     Active Substance: LEVOTHYROXINE
     Indication: HYPOTHYROIDISM
     Route: 065
     Dates: start: 20200423, end: 20200501
  38. ROCURONIUM [Concomitant]
     Active Substance: ROCURONIUM BROMIDE
     Dosage: OTHER
     Route: 065
     Dates: start: 20200501, end: 20200501
  39. FENTANYL. [Concomitant]
     Active Substance: FENTANYL
     Route: 065
     Dates: start: 20200429, end: 20200502
  40. MORPHINE [Concomitant]
     Active Substance: MORPHINE
     Route: 065
     Dates: start: 20200424, end: 20200428

REACTIONS (1)
  - COVID-19 pneumonia [Fatal]

NARRATIVE: CASE EVENT DATE: 20200502
